FAERS Safety Report 15563188 (Version 1)
Quarter: 2018Q4

REPORT INFORMATION
  Report Type: Spontaneous
  Country: JP (occurrence: JP)
  Receive Date: 20181029
  Receipt Date: 20181029
  Transmission Date: 20190205
  Serious: Yes (Other)
  Sender: FDA-Public Use
  Company Number: JP-ROCHE-2205070

PATIENT
  Age: 56 Year
  Sex: Female

DRUGS (6)
  1. LUCENTIS [Suspect]
     Active Substance: RANIBIZUMAB
     Dosage: UNK, RIGHT EYE
     Route: 031
     Dates: start: 20141002
  2. LUCENTIS [Suspect]
     Active Substance: RANIBIZUMAB
     Dosage: UNK, RIGHT EYE
     Route: 031
     Dates: start: 20151126
  3. LUCENTIS [Suspect]
     Active Substance: RANIBIZUMAB
     Dosage: UNK, BOTH EYES
     Route: 031
     Dates: start: 20161006
  4. LUCENTIS [Suspect]
     Active Substance: RANIBIZUMAB
     Dosage: UNK, LEFT EYE
     Route: 031
     Dates: start: 20141210, end: 20141210
  5. LUCENTIS [Suspect]
     Active Substance: RANIBIZUMAB
     Indication: DIABETIC RETINAL OEDEMA
     Dosage: 0.05 ML, BOTH EYES
     Route: 031
     Dates: start: 20140616
  6. LUCENTIS [Suspect]
     Active Substance: RANIBIZUMAB
     Dosage: UNK, LEFT EYE
     Route: 031
     Dates: start: 20150625

REACTIONS (3)
  - Visual acuity reduced [Recovered/Resolved]
  - Diabetic retinal oedema [Recovering/Resolving]
  - Disease progression [Recovering/Resolving]

NARRATIVE: CASE EVENT DATE: 20141210
